FAERS Safety Report 10202114 (Version 2)
Quarter: 2014Q2

REPORT INFORMATION
  Report Type: Spontaneous
  Country: US (occurrence: US)
  Receive Date: 20140528
  Receipt Date: 20140528
  Transmission Date: 20141212
  Serious: No
  Sender: FDA-Public Use
  Company Number: US-BRISTOL-MYERS SQUIBB COMPANY-19953322

PATIENT
  Age: 64 Year
  Sex: Female

DRUGS (1)
  1. METFORMIN HCL [Suspect]

REACTIONS (6)
  - Alopecia [Unknown]
  - Panic attack [Unknown]
  - Tremor [Unknown]
  - Insomnia [Unknown]
  - Dehydration [Unknown]
  - Cold sweat [Unknown]
